FAERS Safety Report 7013945-3 (Version None)
Quarter: 2010Q3

REPORT INFORMATION
  Report Type: 
  Country: None (occurrence: None)
  Receive Date: 20100924
  Receipt Date: 20100916
  Transmission Date: 20110219
  Serious: Yes (Hospitalization)
  Sender: FDA-Public Use
  Company Number: CO-AMGEN-QUU440026

PATIENT
  Sex: Female

DRUGS (9)
  1. ENBREL [Suspect]
     Indication: RHEUMATOID ARTHRITIS
     Dates: start: 20070101
  2. ENBREL [Suspect]
     Route: 048
     Dates: start: 20080101
  3. ATORVASTATIN CALCIUM [Suspect]
     Indication: PRODUCT USED FOR UNKNOWN INDICATION
     Dosage: UNKNOWN, FILM COATED TABLET
     Route: 048
  4. METHYLPREDNISOLONE [Suspect]
     Indication: RHEUMATOID ARTHRITIS
     Route: 048
  5. FLUOXETINE [Concomitant]
     Dosage: UNKNOWN
  6. ALENDRONATE SODIUM [Concomitant]
     Dosage: UNKNOWN
  7. CALCIUM [Concomitant]
     Dosage: UNKNOWN
  8. ESOMEPRAZOLE MAGNESIUM [Concomitant]
     Dosage: UNKNOWN
  9. ARAVA [Concomitant]

REACTIONS (4)
  - FEMUR FRACTURE [None]
  - LUNG ADENOCARCINOMA METASTATIC [None]
  - PLEURAL EFFUSION [None]
  - UPPER LIMB FRACTURE [None]
